FAERS Safety Report 24803367 (Version 1)
Quarter: 2025Q1

REPORT INFORMATION
  Report Type: Spontaneous
  Country: NL (occurrence: NL)
  Receive Date: 20250103
  Receipt Date: 20250103
  Transmission Date: 20250409
  Serious: No
  Sender: ALKEM
  Company Number: NL-ALKEM LABORATORIES LIMITED-NL-ALKEM-2024-03033

PATIENT

DRUGS (4)
  1. TACROLIMUS [Interacting]
     Active Substance: TACROLIMUS
     Indication: Product used for unknown indication
     Route: 065
  2. ELEXACAFTOR [Interacting]
     Active Substance: ELEXACAFTOR
     Indication: Product used for unknown indication
     Route: 065
  3. IVACAFTOR [Interacting]
     Active Substance: IVACAFTOR
     Indication: Product used for unknown indication
     Route: 065
  4. TEZACAFTOR [Interacting]
     Active Substance: TEZACAFTOR
     Indication: Product used for unknown indication
     Route: 065

REACTIONS (2)
  - Drug interaction [Unknown]
  - Drug level increased [Unknown]
